FAERS Safety Report 4751322-6 (Version None)
Quarter: 2005Q3

REPORT INFORMATION
  Report Type: 
  Country: None (occurrence: None)
  Receive Date: 20050822
  Receipt Date: 20050811
  Transmission Date: 20060218
  Serious: Yes (Hospitalization, Other)
  Sender: FDA-Public Use
  Company Number: 2005109560

PATIENT
  Age: 84 Year
  Sex: Male
  Weight: 70.7611 kg

DRUGS (2)
  1. TIKOSYN [Suspect]
     Indication: ATRIAL FIBRILLATION
     Dosage: ORAL
     Route: 048
     Dates: start: 20050101, end: 20050101
  2. SYNTHROID [Concomitant]

REACTIONS (7)
  - ASTHENIA [None]
  - DRUG INEFFECTIVE [None]
  - FALL [None]
  - HAEMATOMA [None]
  - HEART RATE INCREASED [None]
  - HEART RATE IRREGULAR [None]
  - PAIN [None]
